FAERS Safety Report 23394235 (Version 1)
Quarter: 2024Q1

REPORT INFORMATION
  Report Type: Spontaneous
  Country: EG (occurrence: EG)
  Receive Date: 20240111
  Receipt Date: 20240111
  Transmission Date: 20240410
  Serious: Yes (Other)
  Sender: FDA-Public Use
  Company Number: EG-HIKMA PHARMACEUTICALS-EG-H14001-24-00213

PATIENT
  Age: 39 Year
  Sex: Female
  Weight: 80 kg

DRUGS (6)
  1. CARBOPLATIN [Suspect]
     Active Substance: CARBOPLATIN
     Indication: Breast cancer
     Dosage: 750 MILLIGRAM, DAY 1, EVERY 3 WEEKS
     Route: 041
  2. CARBOPLATIN [Suspect]
     Active Substance: CARBOPLATIN
     Dosage: 750 MILLIGRAM, DAY 1, EVERY 3 WEEKS
     Route: 041
     Dates: start: 20231118
  3. PHESGO [Suspect]
     Active Substance: HYALURONIDASE-ZZXF\PERTUZUMAB\TRASTUZUMAB
     Indication: Breast cancer
     Dosage: 600 MILLIGRAM, DAY 1, EVERY 3 WEEKS
     Route: 041
  4. PHESGO [Suspect]
     Active Substance: HYALURONIDASE-ZZXF\PERTUZUMAB\TRASTUZUMAB
     Dosage: 600 MILLIGRAM, DAY 1, EVERY 3 WEEKS
     Route: 041
     Dates: start: 20231021
  5. PACLITAXEL [Suspect]
     Active Substance: PACLITAXEL
     Indication: Breast cancer
     Dosage: 144 MILLIGRAM, WEEKLY, EVERY 3 WEEKS
     Route: 041
  6. PACLITAXEL [Suspect]
     Active Substance: PACLITAXEL
     Dosage: 144 MILLIGRAM, WEEKLY, EVERY 3 WEEKS
     Route: 041
     Dates: start: 20231118

REACTIONS (2)
  - Thrombocytopenia [Unknown]
  - Dysgeusia [Not Recovered/Not Resolved]

NARRATIVE: CASE EVENT DATE: 20231118
